FAERS Safety Report 16306845 (Version 1)
Quarter: 2019Q2

REPORT INFORMATION
  Report Type: Spontaneous
  Country: FR (occurrence: FR)
  Receive Date: 20190513
  Receipt Date: 20190513
  Transmission Date: 20190711
  Serious: Yes (Other)
  Sender: FDA-Public Use
  Company Number: PHHY2019FR106978

PATIENT
  Age: 58 Year
  Sex: Female
  Weight: 47 kg

DRUGS (3)
  1. NAVELBINE [Suspect]
     Active Substance: VINORELBINE TARTRATE
     Indication: TONSIL CANCER
     Dosage: UNK
     Route: 065
  2. CISPLATINE [Suspect]
     Active Substance: CISPLATIN
     Indication: TONSIL CANCER
     Dosage: UNK
     Route: 042
  3. VOTRIENT [Suspect]
     Active Substance: PAZOPANIB HYDROCHLORIDE
     Indication: TONSIL CANCER
     Dosage: 800 MG, QD
     Route: 048
     Dates: start: 20190124, end: 20190403

REACTIONS (3)
  - Hepatocellular injury [Not Recovered/Not Resolved]
  - Cholestasis [Not Recovered/Not Resolved]
  - Hypothyroidism [Not Recovered/Not Resolved]

NARRATIVE: CASE EVENT DATE: 20190403
